FAERS Safety Report 16433694 (Version 1)
Quarter: 2019Q2

REPORT INFORMATION
  Report Type: Spontaneous
  Country: US (occurrence: US)
  Receive Date: 20190614
  Receipt Date: 20190614
  Transmission Date: 20190711
  Serious: Yes (Hospitalization)
  Sender: FDA-Public Use
  Company Number: US-SA-2019SA162655

PATIENT

DRUGS (10)
  1. AUGMENTIN [Suspect]
     Active Substance: AMOXICILLIN\CLAVULANATE POTASSIUM
  2. INFLIXIMAB [Suspect]
     Active Substance: INFLIXIMAB
  3. LEVOFLOXACIN. [Suspect]
     Active Substance: LEVOFLOXACIN
  4. ATORVASTATIN [Suspect]
     Active Substance: ATORVASTATIN
  5. LIPITOR [Suspect]
     Active Substance: ATORVASTATIN CALCIUM
  6. HYDROXYCHLOROQUINE [Suspect]
     Active Substance: HYDROXYCHLOROQUINE
  7. LEFLUNOMIDE. [Suspect]
     Active Substance: LEFLUNOMIDE
  8. TRAMADOL HYDROCHLORIDE. [Suspect]
     Active Substance: TRAMADOL HYDROCHLORIDE
  9. CODEINE [Suspect]
     Active Substance: CODEINE
  10. AMOXICILLIN. [Suspect]
     Active Substance: AMOXICILLIN

REACTIONS (2)
  - Pneumonitis [Recovering/Resolving]
  - Drug hypersensitivity [Recovering/Resolving]

NARRATIVE: CASE EVENT DATE: 2012
